FAERS Safety Report 23556807 (Version 1)
Quarter: 2024Q1

REPORT INFORMATION
  Report Type: Report from Study
  Country: US (occurrence: US)
  Receive Date: 20240223
  Receipt Date: 20240223
  Transmission Date: 20240410
  Serious: Yes (Hospitalization)
  Sender: FDA-Public Use
  Company Number: US-SUN PHARMACEUTICAL INDUSTRIES LTD-2024R1-432375

PATIENT
  Sex: Male

DRUGS (1)
  1. CLOZAPINE [Suspect]
     Active Substance: CLOZAPINE
     Indication: Schizophrenia
     Dosage: 400 MG IN THE EVENING AND 100 MG IN THE MORNING
     Route: 065

REACTIONS (3)
  - Psychotic disorder [Recovering/Resolving]
  - Tachycardia [Unknown]
  - Constipation [Unknown]
